FAERS Safety Report 10977215 (Version 1)
Quarter: 2015Q1

REPORT INFORMATION
  Report Type: Spontaneous
  Country: IT (occurrence: None)
  Receive Date: 20150330
  Receipt Date: 20150330
  Transmission Date: 20150721
  Serious: Yes (Hospitalization)
  Sender: FDA-Public Use
  Company Number: KAD201503-000588

PATIENT
  Age: 69 Year
  Sex: Female

DRUGS (5)
  1. RIBAVIRIN. [Suspect]
     Active Substance: RIBAVIRIN
     Indication: HEPATITIS C
     Dosage: 5 UNIT, ORAL
     Route: 048
     Dates: start: 20140801, end: 20140930
  2. INCIVO [Suspect]
     Active Substance: TELAPREVIR
     Indication: HEPATITIS C
     Dosage: 1 UNIT, ORAL
     Route: 048
     Dates: start: 20140801, end: 20140930
  3. INTERFERON ALFA 2A PEGYLATED (INTERFERON ALFA 2A) [Suspect]
     Active Substance: INTERFERON ALFA-2A
     Indication: HEPATITIS C
     Dosage: 1 UNIT, 1 IN 1 WEEK
     Dates: start: 20140801, end: 20140930
  4. FUROSEMIDE. [Concomitant]
     Active Substance: FUROSEMIDE
  5. LANSOPRAZOLE. [Concomitant]
     Active Substance: LANSOPRAZOLE

REACTIONS (5)
  - Haemoglobin decreased [None]
  - Alopecia [None]
  - Hyperglycaemia [None]
  - Fatigue [None]
  - Malaise [None]

NARRATIVE: CASE EVENT DATE: 20140930
